FAERS Safety Report 7238259-8 (Version None)
Quarter: 2011Q1

REPORT INFORMATION
  Report Type: 
  Country: None (occurrence: None)
  Receive Date: 20110119
  Receipt Date: 20110119
  Transmission Date: 20110831
  Serious: Yes (Disabling, Other)
  Sender: FDA-Public Use
  Company Number: None

PATIENT
  Age: 40 Year
  Sex: Female
  Weight: 61.2356 kg

DRUGS (1)
  1. CIPRO [Suspect]
     Indication: CYSTITIS
     Dates: start: 20101108, end: 20101115

REACTIONS (14)
  - SPEECH DISORDER [None]
  - ARTHRALGIA [None]
  - ABDOMINAL PAIN [None]
  - URINARY INCONTINENCE [None]
  - NO THERAPEUTIC RESPONSE [None]
  - HEADACHE [None]
  - IMPAIRED WORK ABILITY [None]
  - GAIT DISTURBANCE [None]
  - MEMORY IMPAIRMENT [None]
  - MUSCULOSKELETAL DISORDER [None]
  - INSOMNIA [None]
  - MYALGIA [None]
  - BACK PAIN [None]
  - LETHARGY [None]
